FAERS Safety Report 9815763 (Version 1)
Quarter: 2014Q1

REPORT INFORMATION
  Report Type: Spontaneous
  Country: US (occurrence: US)
  Receive Date: 20140114
  Receipt Date: 20140114
  Transmission Date: 20141002
  Serious: Yes (Hospitalization, Other)
  Sender: FDA-Public Use
  Company Number: US-B.I. PHARMACEUTICALS,INC./RIDGEFIELD-2014-BI-01121BP

PATIENT
  Sex: Female

DRUGS (17)
  1. PRADAXA [Suspect]
     Indication: ATRIAL FLUTTER
     Dosage: 150 MG
  2. AMLODIPINE [Concomitant]
     Dosage: 5 MG
     Route: 048
  3. ASPIRIN [Concomitant]
     Dosage: 81 MG
     Route: 048
  4. ALPHAGAN [Concomitant]
  5. CALCIUM/VITAMIN D [Concomitant]
     Dosage: 1000 MG
     Route: 048
  6. CILOSTAZOL [Concomitant]
     Indication: PERIPHERAL ARTERIAL OCCLUSIVE DISEASE
     Dosage: 100 MG
     Route: 048
  7. CLOPIDOGREL [Concomitant]
     Dosage: 75 MG
     Route: 048
  8. DABIGATRAN [Concomitant]
     Dosage: 150 MG
     Route: 048
  9. COSOPT [Concomitant]
  10. INSULIN [Concomitant]
  11. LEVOTHYROXINE [Concomitant]
     Dosage: 15 MCG
     Route: 048
  12. LATANOPROST [Concomitant]
  13. IMDUR [Concomitant]
     Dosage: 30 MG
     Route: 048
  14. METOPROLOL SUCCINATE [Concomitant]
     Dosage: 100 MG
     Route: 048
  15. MULTIVITAMIN [Concomitant]
     Dosage: 1 ANZ
     Route: 048
  16. FISH OIL [Concomitant]
     Dosage: 1 G
     Route: 048
  17. IV HYDRATION [Concomitant]
     Route: 042

REACTIONS (3)
  - Peripheral vascular disorder [Unknown]
  - Atrial fibrillation [Unknown]
  - Renal failure [Unknown]
